FAERS Safety Report 21858555 (Version 1)
Quarter: 2023Q1

REPORT INFORMATION
  Report Type: Other
  Country: None (occurrence: US)
  Receive Date: 20230113
  Receipt Date: 20230113
  Transmission Date: 20230418
  Serious: Yes (Hospitalization)
  Sender: FDA-Public Use
  Company Number: US-Ajanta Pharma USA Inc.-2136686

PATIENT
  Age: 91 Year
  Sex: Female

DRUGS (16)
  1. DOXYCYCLINE HYCLATE [Suspect]
     Active Substance: DOXYCYCLINE HYCLATE
     Indication: Staphylococcal bacteraemia
     Route: 065
  2. ACETAMINOPHEN [Concomitant]
     Active Substance: ACETAMINOPHEN
  3. BISACODYL [Concomitant]
     Active Substance: BISACODYL
  4. BUMETANIDE [Concomitant]
     Active Substance: BUMETANIDE
  5. DIGOXIN [Concomitant]
     Active Substance: DIGOXIN
  6. DOCUSATE SODIUM [Concomitant]
     Active Substance: DOCUSATE SODIUM
  7. GABAPENTIN [Concomitant]
     Active Substance: GABAPENTIN
  8. ISOSORBIDE DINITRATE [Concomitant]
     Active Substance: ISOSORBIDE DINITRATE
  9. LEVOFLOXACIN [Concomitant]
     Active Substance: LEVOFLOXACIN
  10. METOPROLOL TARTRATE [Concomitant]
     Active Substance: METOPROLOL TARTRATE
  11. PANTOPRAZOLE SODIUM [Concomitant]
     Active Substance: PANTOPRAZOLE SODIUM
  12. RIVAROXABAN [Concomitant]
     Active Substance: RIVAROXABAN
  13. SENNA/DOCUSATE SODIUM [Concomitant]
     Active Substance: DOCUSATE SODIUM\SENNOSIDES
  14. SERTRALINE [Concomitant]
     Active Substance: SERTRALINE HYDROCHLORIDE
  15. SIMVASTATIN [Concomitant]
     Active Substance: SIMVASTATIN
  16. TRAMADOL [Concomitant]
     Active Substance: TRAMADOL

REACTIONS (3)
  - Hypovolaemic shock [Recovered/Resolved]
  - Confusional state [Recovered/Resolved]
  - Pancreatitis [Recovered/Resolved]
